FAERS Safety Report 5563665-7 (Version None)
Quarter: 2007Q4

REPORT INFORMATION
  Report Type: 
  Country: None (occurrence: None)
  Receive Date: 20071217
  Receipt Date: 20070718
  Transmission Date: 20080405
  Serious: No
  Sender: FDA-Public Use
  Company Number: US-ASTRAZENECA-2007UW17070

PATIENT
  Sex: Female

DRUGS (2)
  1. CRESTOR [Suspect]
     Route: 048
  2. TOPROL-XL [Suspect]
     Route: 048

REACTIONS (7)
  - ABDOMINAL PAIN [None]
  - CONFUSIONAL STATE [None]
  - DYSSTASIA [None]
  - FALL [None]
  - ILL-DEFINED DISORDER [None]
  - MOBILITY DECREASED [None]
  - MUSCULAR WEAKNESS [None]
